FAERS Safety Report 10039726 (Version 2)
Quarter: 2014Q2

REPORT INFORMATION
  Report Type: Spontaneous
  Country: JP (occurrence: JP)
  Receive Date: 20140326
  Receipt Date: 20140403
  Transmission Date: 20141212
  Serious: Yes (Other)
  Sender: FDA-Public Use
  Company Number: JP-PFIZER INC-2014084984

PATIENT
  Sex: Male

DRUGS (1)
  1. CELECOX [Suspect]
     Route: 048

REACTIONS (1)
  - Haematochezia [Unknown]
